FAERS Safety Report 15569562 (Version 1)
Quarter: 2018Q4

REPORT INFORMATION
  Report Type: Spontaneous
  Country: JP (occurrence: JP)
  Receive Date: 20181031
  Receipt Date: 20181031
  Transmission Date: 20190205
  Serious: Yes (Hospitalization)
  Sender: FDA-Public Use
  Company Number: JP-ABBVIE-18S-087-2534347-00

PATIENT
  Sex: Female

DRUGS (1)
  1. DUODOPA [Suspect]
     Active Substance: CARBIDOPA\LEVODOPA
     Indication: PARKINSON^S DISEASE
     Route: 050
     Dates: start: 2017, end: 20181025

REACTIONS (6)
  - Fracture [Unknown]
  - Fall [Unknown]
  - Overdose [Unknown]
  - Intentional product misuse [Recovered/Resolved]
  - Incoherent [Unknown]
  - Anal incontinence [Unknown]

NARRATIVE: CASE EVENT DATE: 2017
